FAERS Safety Report 5079569-2 (Version None)
Quarter: 2006Q3

REPORT INFORMATION
  Report Type: 
  Country: None (occurrence: None)
  Receive Date: 20060811
  Receipt Date: 20060811
  Transmission Date: 20061208
  Serious: No
  Sender: FDA-Public Use
  Company Number: None

PATIENT
  Age: 28 Year
  Sex: Male
  Weight: 74.8435 kg

DRUGS (1)
  1. LEVAQUIN [Suspect]
     Indication: LOCALISED INFECTION
     Dosage: 750MG   QD   PO
     Route: 048
     Dates: start: 20060808, end: 20060815

REACTIONS (2)
  - DIARRHOEA [None]
  - NAUSEA [None]
